FAERS Safety Report 16471114 (Version 1)
Quarter: 2019Q2

REPORT INFORMATION
  Report Type: Spontaneous
  Country: GB (occurrence: GB)
  Receive Date: 20190624
  Receipt Date: 20190624
  Transmission Date: 20190711
  Serious: Yes (Other)
  Sender: FDA-Public Use
  Company Number: GB-GLAXOSMITHKLINE-GB2019GSK112875

PATIENT
  Age: 62 Year
  Sex: Male

DRUGS (1)
  1. ACITRETIN. [Suspect]
     Active Substance: ACITRETIN
     Indication: HEREDITARY PALMOPLANTAR KERATODERMA
     Dosage: UNK
     Route: 048

REACTIONS (4)
  - Skin exfoliation [Unknown]
  - Therapeutic product effect incomplete [Unknown]
  - Skin fragility [Unknown]
  - Ichthyosis [Unknown]
